FAERS Safety Report 5513237-5 (Version None)
Quarter: 2007Q4

REPORT INFORMATION
  Report Type: 
  Country: None (occurrence: None)
  Receive Date: 20071108
  Receipt Date: 20071029
  Transmission Date: 20080405
  Serious: Yes (Other)
  Sender: FDA-Public Use
  Company Number: L07-TUR-05720-02

PATIENT
  Age: 2 Week
  Sex: Male

DRUGS (1)
  1. CARBAMAZEPINE [Suspect]

REACTIONS (9)
  - CAESAREAN SECTION [None]
  - CARDIOMEGALY [None]
  - CONGENITAL GREAT VESSEL ANOMALY [None]
  - CYANOSIS NEONATAL [None]
  - DRUG EXPOSURE DURING PREGNANCY [None]
  - HEART RATE INCREASED [None]
  - PO2 DECREASED [None]
  - RESPIRATORY DISORDER NEONATAL [None]
  - TRANSPOSITION OF THE GREAT VESSELS [None]
